FAERS Safety Report 13012275 (Version 4)
Quarter: 2019Q1

REPORT INFORMATION
  Report Type: Spontaneous
  Country: US (occurrence: US)
  Receive Date: 20161209
  Receipt Date: 20190214
  Transmission Date: 20190417
  Serious: No
  Sender: FDA-Public Use
  Company Number: US-PFIZER INC-2016563683

PATIENT
  Age: 59 Year
  Sex: Female

DRUGS (8)
  1. CELEBREX [Suspect]
     Active Substance: CELECOXIB
     Dosage: UNK
  2. TRAMADOL. [Suspect]
     Active Substance: TRAMADOL
     Dosage: UNK
  3. ULTRAM [Suspect]
     Active Substance: TRAMADOL HYDROCHLORIDE
     Dosage: UNK
  4. MILNACIPRAN [Suspect]
     Active Substance: MILNACIPRAN
     Dosage: UNK
  5. CELECOXIB. [Suspect]
     Active Substance: CELECOXIB
     Dosage: UNK
  6. DULOXETINE. [Suspect]
     Active Substance: DULOXETINE
     Dosage: UNK
  7. CYMBALTA [Suspect]
     Active Substance: DULOXETINE HYDROCHLORIDE
     Dosage: UNK
  8. SAVELLA [Suspect]
     Active Substance: MILNACIPRAN HYDROCHLORIDE
     Dosage: UNK

REACTIONS (2)
  - Drug hypersensitivity [Unknown]
  - Rash [Unknown]
